FAERS Safety Report 8783692 (Version 3)
Quarter: 2012Q4

REPORT INFORMATION
  Report Type: 
  Country: US (occurrence: US)
  Receive Date: 20120913
  Receipt Date: 20121101
  Transmission Date: 20130627
  Serious: No
  Sender: FDA-Public Use
  Company Number: US-009507513-1209USA002250

PATIENT
  Sex: Female

DRUGS (1)
  1. IMPLANON [Suspect]
     Indication: CONTRACEPTION
     Dosage: UNK
     Dates: start: 201109

REACTIONS (5)
  - Menstruation irregular [Recovered/Resolved]
  - Device difficult to use [Unknown]
  - Device difficult to use [Unknown]
  - Device difficult to use [Unknown]
  - Device difficult to use [Unknown]
